FAERS Safety Report 4464376-1 (Version None)
Quarter: 2004Q3

REPORT INFORMATION
  Report Type: 
  Country: None (occurrence: None)
  Receive Date: 20040917
  Receipt Date: 20040727
  Transmission Date: 20050211
  Serious: No
  Sender: FDA-Public Use
  Company Number: US-JNJFOC-20040707991

PATIENT
  Sex: Female

DRUGS (2)
  1. ORTHO EVRA [Suspect]
     Indication: CONTRACEPTION
     Dosage: 1 DOSE(S), 3 IN 4 WEEK, TRANSDERMAL; SEE IMAGE
     Route: 062
     Dates: start: 20040627, end: 20040711
  2. ORTHO EVRA [Suspect]
     Indication: CONTRACEPTION
     Dosage: 1 DOSE(S), 3 IN 4 WEEK, TRANSDERMAL; SEE IMAGE
     Route: 062
     Dates: start: 20040718, end: 20040718

REACTIONS (4)
  - APPLICATION SITE DERMATITIS [None]
  - METRORRHAGIA [None]
  - NAUSEA [None]
  - VOMITING [None]
